FAERS Safety Report 5614640-5 (Version None)
Quarter: 2008Q1

REPORT INFORMATION
  Report Type: 
  Country: None (occurrence: None)
  Receive Date: 20080131
  Receipt Date: 20080111
  Transmission Date: 20080703
  Serious: Yes (Life-Threatening, Hospitalization, Other)
  Sender: FDA-Public Use
  Company Number: US200706006060

PATIENT
  Age: 36 Year
  Sex: Male

DRUGS (3)
  1. SYMBYAX [Suspect]
     Indication: BIPOLAR DISORDER
     Dates: start: 20040512, end: 20040101
  2. ZYPREXA [Suspect]
     Dates: start: 20040719
  3. FLUOXETINE [Concomitant]

REACTIONS (21)
  - ACUTE RESPIRATORY DISTRESS SYNDROME [None]
  - BLOOD GLUCOSE INCREASED [None]
  - COAGULOPATHY [None]
  - DELIRIUM [None]
  - DIABETES MELLITUS [None]
  - DIABETES MELLITUS INADEQUATE CONTROL [None]
  - DIABETIC KETOACIDOSIS [None]
  - DIALYSIS [None]
  - ELECTROLYTE IMBALANCE [None]
  - EMOTIONAL DISORDER [None]
  - ENCEPHALOPATHY [None]
  - GENERAL PHYSICAL HEALTH DETERIORATION [None]
  - HYPERTRIGLYCERIDAEMIA [None]
  - INJURY [None]
  - MULTI-ORGAN FAILURE [None]
  - PANCREATITIS NECROTISING [None]
  - PNEUMONIA [None]
  - RENAL FAILURE ACUTE [None]
  - RESPIRATORY FAILURE [None]
  - SURGERY [None]
  - UPPER GASTROINTESTINAL HAEMORRHAGE [None]
